FAERS Safety Report 9299155 (Version 2)
Quarter: 2013Q2

REPORT INFORMATION
  Report Type: Report from Study
  Country: US (occurrence: US)
  Receive Date: 20130520
  Receipt Date: 20130530
  Transmission Date: 20140414
  Serious: Yes (Death, Other)
  Sender: FDA-Public Use
  Company Number: US-ACTELION-A-NJ2009-25276

PATIENT
  Age: 57 Year
  Sex: Female
  Weight: 54.42 kg

DRUGS (5)
  1. TRACLEER [Suspect]
     Indication: PULMONARY ARTERIAL HYPERTENSION
     Dosage: 62.5 MG, BID
     Route: 048
     Dates: start: 20090423, end: 20130427
  2. REVATIO [Concomitant]
  3. TRANSDERMAL-NTG [Concomitant]
  4. OXYGEN [Concomitant]
  5. ASPIRIN [Concomitant]

REACTIONS (21)
  - Haemorrhage intracranial [Fatal]
  - Fall [Unknown]
  - Pulmonary arterial hypertension [Unknown]
  - Condition aggravated [Unknown]
  - Syncope [Unknown]
  - Increased upper airway secretion [Unknown]
  - Oropharyngeal pain [Unknown]
  - Nausea [Unknown]
  - Skin discolouration [Unknown]
  - Pain in extremity [Unknown]
  - Insomnia [Unknown]
  - Back pain [Unknown]
  - Decreased appetite [Unknown]
  - Oedema peripheral [Unknown]
  - Dyspnoea [Unknown]
  - Dizziness [Unknown]
  - Weight increased [Unknown]
  - Chest pain [Unknown]
  - Fatigue [Unknown]
  - Presyncope [Unknown]
  - Abdominal distension [Unknown]
